FAERS Safety Report 25374280 (Version 2)
Quarter: 2025Q2

REPORT INFORMATION
  Report Type: Spontaneous
  Country: US (occurrence: US)
  Receive Date: 20250529
  Receipt Date: 20250609
  Transmission Date: 20250717
  Serious: No
  Sender: FRESENIUS KABI
  Company Number: US-FreseniusKabi-FK202507305

PATIENT
  Sex: Female

DRUGS (1)
  1. ADALIMUMAB-AACF [Suspect]
     Active Substance: ADALIMUMAB-AACF
     Indication: Product used for unknown indication
     Route: 058

REACTIONS (1)
  - Injection site haemorrhage [Unknown]
